FAERS Safety Report 9338403 (Version 2)
Quarter: 2013Q4

REPORT INFORMATION
  Report Type: Spontaneous
  Country: GB (occurrence: GB)
  Receive Date: 20130610
  Receipt Date: 20131025
  Transmission Date: 20140711
  Serious: Yes (Hospitalization)
  Sender: FDA-Public Use
  Company Number: GB-RANBAXY-2013R1-69944

PATIENT
  Sex: 0
  Weight: 98 kg

DRUGS (6)
  1. RISPERIDONE [Suspect]
     Indication: ANXIETY
     Dosage: UNK
     Route: 065
     Dates: start: 2011, end: 2013
  2. RISPERIDONE [Suspect]
     Indication: PANIC ATTACK
  3. RISPERIDONE [Suspect]
     Indication: POST-TRAUMATIC STRESS DISORDER
  4. CITALOPRAM [Concomitant]
     Indication: ANXIETY
     Route: 065
  5. CITALOPRAM [Concomitant]
     Indication: PANIC ATTACK
  6. CITALOPRAM [Concomitant]
     Indication: POST-TRAUMATIC STRESS DISORDER

REACTIONS (8)
  - Chest pain [Recovered/Resolved]
  - Confusional state [Recovered/Resolved]
  - Emotional distress [Recovered/Resolved]
  - Memory impairment [Recovered/Resolved]
  - Pain in extremity [Recovered/Resolved]
  - Psychotic disorder [Recovered/Resolved]
  - Syncope [Recovered/Resolved]
  - Irritability [Recovered/Resolved]
